FAERS Safety Report 8817302 (Version 2)
Quarter: 2012Q4

REPORT INFORMATION
  Report Type: 
  Country: US (occurrence: US)
  Receive Date: 20121004
  Receipt Date: 20121012
  Transmission Date: 20130627
  Serious: No
  Sender: FDA-Public Use
  Company Number: US-ASTRAZENECA-2012SE72938

PATIENT
  Sex: Female

DRUGS (3)
  1. SYMBICORT PMDI [Suspect]
     Indication: ASTHMA
     Dosage: 160/4.5 MCG, TWO TIMES A DAY
     Route: 055
  2. SYMBICORT PMDI [Suspect]
     Indication: ASTHMA
     Dosage: ONE TIME TWO PUFFS
     Route: 055
  3. SINGULAIR [Concomitant]
     Indication: ASTHMA
     Dosage: TWO TIMES FOUR PUFFS

REACTIONS (4)
  - Sleep disorder due to general medical condition, insomnia type [Unknown]
  - Activities of daily living impaired [Unknown]
  - Asthma [Unknown]
  - Off label use [Unknown]
